FAERS Safety Report 4648944-X (Version None)
Quarter: 2005Q2

REPORT INFORMATION
  Report Type: 
  Country: None (occurrence: None)
  Receive Date: 20050427
  Receipt Date: 20050414
  Transmission Date: 20051028
  Serious: Yes (Hospitalization)
  Sender: FDA-Public Use
  Company Number: 2005059737

PATIENT
  Age: 54 Year
  Sex: Female
  Weight: 72.1219 kg

DRUGS (9)
  1. BEXTRA [Suspect]
     Indication: INTERVERTEBRAL DISC DEGENERATION
     Dosage: 10 MG (10 MG, 1 IN 1 D)
  2. BEXTRA [Suspect]
     Indication: SPONDYLITIS
     Dosage: 10 MG (10 MG, 1 IN 1 D)
  3. CELEBREX [Suspect]
     Indication: INTERVERTEBRAL DISC DEGENERATION
     Dosage: (2 IN 1 D)
  4. CELEBREX [Suspect]
     Indication: SPONDYLITIS
     Dosage: (2 IN 1 D)
  5. GABAPENTIN [Concomitant]
  6. TIZANIDINE HCL [Concomitant]
  7. LANSOPRAZOLE [Concomitant]
  8. CLOPIDOGREL BISULFATE [Concomitant]
  9. SIMVASTATIN [Concomitant]

REACTIONS (6)
  - DRUG INEFFECTIVE [None]
  - EXOSTOSIS [None]
  - FIBROMYALGIA [None]
  - INSOMNIA [None]
  - INTERVERTEBRAL DISC PROTRUSION [None]
  - MOVEMENT DISORDER [None]
